FAERS Safety Report 4702950-5 (Version None)
Quarter: 2005Q2

REPORT INFORMATION
  Report Type: 
  Country: None (occurrence: None)
  Receive Date: 20050627
  Receipt Date: 20050610
  Transmission Date: 20051028
  Serious: Yes (Life-Threatening)
  Sender: FDA-Public Use
  Company Number: D01200401659

PATIENT
  Age: 40 Year
  Sex: Male
  Weight: 71 kg

DRUGS (6)
  1. ENOXAPARIN SODIUM [Suspect]
     Indication: ACUTE MYOCARDIAL INFARCTION
     Dosage: 1 MG/KG BID - SUBCUTANEOUS
     Route: 058
     Dates: start: 20040507, end: 20040510
  2. ENOXAPARIN SODIUM [Suspect]
     Indication: ANGINA UNSTABLE
     Dosage: 1 MG/KG BID - SUBCUTANEOUS
     Route: 058
     Dates: start: 20040507, end: 20040510
  3. ASPIRIN [Concomitant]
  4. VERAPAMIL [Concomitant]
  5. SIMVASTATIN [Concomitant]
  6. ISOSORBIDE DINITRATE [Concomitant]

REACTIONS (5)
  - CORONARY ARTERY OCCLUSION [None]
  - CORONARY ARTERY STENOSIS [None]
  - CORONARY ARTERY THROMBOSIS [None]
  - DRUG INEFFECTIVE [None]
  - PROCEDURAL COMPLICATION [None]
